FAERS Safety Report 12113805 (Version 1)
Quarter: 2016Q1

REPORT INFORMATION
  Report Type: Spontaneous
  Country: US (occurrence: None)
  Receive Date: 20160224
  Receipt Date: 20160224
  Transmission Date: 20160526
  Serious: Yes (Hospitalization, Other)
  Sender: FDA-Public Use
  Company Number: None

PATIENT
  Age: 19 Year
  Sex: Female
  Weight: 69 kg

DRUGS (5)
  1. TPN [Concomitant]
     Active Substance: AMINO ACIDS\DEXTROSE\ELECTROLYTES NOS\SOYBEAN OIL
  2. HYDROMORPHONE [Concomitant]
     Active Substance: HYDROMORPHONE
  3. FENTANYL TRANSDERMAL SYSTEM [Suspect]
     Active Substance: FENTANYL
     Indication: PAIN MANAGEMENT
     Dosage: 100 MCG/HR Q72HRS TRANSDERMAL
     Dates: start: 20151224, end: 20151226
  4. TYLENOL [Concomitant]
     Active Substance: ACETAMINOPHEN
  5. TIGECYCLINE CONCURRENT WITH FENTANYL PATCH [Concomitant]

REACTIONS (4)
  - Product adhesion issue [None]
  - Drug ineffective [None]
  - Pruritus [None]
  - Pain [None]

NARRATIVE: CASE EVENT DATE: 20151226
